FAERS Safety Report 16820484 (Version 1)
Quarter: 2019Q3

REPORT INFORMATION
  Report Type: Report from Study
  Country: None (occurrence: IL)
  Receive Date: 20190918
  Receipt Date: 20190918
  Transmission Date: 20191005
  Serious: Yes (Other)
  Sender: FDA-Public Use
  Company Number: IL-ABBVIE-19K-082-2925729-00

PATIENT
  Sex: Female

DRUGS (3)
  1. HUMIRA [Suspect]
     Active Substance: ADALIMUMAB
     Dosage: FREQUENCY INCREASED
     Route: 058
  2. HUMIRA [Suspect]
     Active Substance: ADALIMUMAB
     Indication: CROHN^S DISEASE
     Route: 058
     Dates: start: 20110509
  3. HUMIRA [Suspect]
     Active Substance: ADALIMUMAB
     Dosage: FREQUENCY DECREASED
     Route: 058

REACTIONS (3)
  - Small intestinal resection [Unknown]
  - Paraesthesia [Unknown]
  - Hypoaesthesia [Unknown]
